FAERS Safety Report 7782025-1 (Version None)
Quarter: 2011Q3

REPORT INFORMATION
  Report Type: 
  Country: None (occurrence: None)
  Receive Date: 20110927
  Receipt Date: 20110919
  Transmission Date: 20111222
  Serious: Yes (Hospitalization)
  Sender: FDA-Public Use
  Company Number: PHHY2011US39678

PATIENT
  Age: 25 Year
  Sex: Male

DRUGS (2)
  1. TOBI [Suspect]
     Dosage: 300 MG, BID (28 DAYS OFF AND 28 DAYS ON)
     Dates: start: 20080423
  2. PULMOZYME [Concomitant]

REACTIONS (3)
  - THROAT IRRITATION [None]
  - PNEUMONIA [None]
  - DYSPNOEA [None]
